FAERS Safety Report 11518105 (Version 1)
Quarter: 2015Q3

REPORT INFORMATION
  Report Type: Spontaneous
  Country: US (occurrence: US)
  Receive Date: 20150917
  Receipt Date: 20150917
  Transmission Date: 20151125
  Serious: No
  Sender: FDA-Public Use
  Company Number: US-GALDERMA-US15004700

PATIENT
  Age: 60 Year
  Sex: Female

DRUGS (8)
  1. VITAMIN D [Concomitant]
     Active Substance: CHOLECALCIFEROL
  2. COVARYX (ESTERIFIED ESTROGENS AND METHYLTESTOSTERONE ) [Concomitant]
     Indication: HORMONE REPLACEMENT THERAPY
     Dosage: 0.75 MG
     Route: 048
     Dates: start: 2005
  3. PROGESTERONE. [Concomitant]
     Active Substance: PROGESTERONE
     Indication: HORMONE REPLACEMENT THERAPY
     Dosage: 100 MG
  4. VITAMIN B [Concomitant]
     Active Substance: VITAMIN B
  5. METRONIDAZOLE LOTION (METRONIDAZOLE) 0.75% [Suspect]
     Active Substance: METRONIDAZOLE
     Indication: ROSACEA
     Route: 061
  6. OIL OF OLAY MOISTURIZER [Concomitant]
     Indication: DRY SKIN PROPHYLAXIS
     Route: 061
  7. MIRVASO [Suspect]
     Active Substance: BRIMONIDINE TARTRATE
     Indication: ROSACEA
     Dosage: 0.33%
     Route: 061
     Dates: start: 20150611, end: 20150611
  8. OIL OF OLAY FOAMING FACE WASH [Concomitant]
     Indication: THERAPEUTIC SKIN CARE TOPICAL
     Route: 061
     Dates: start: 2010

REACTIONS (5)
  - Drug ineffective [Unknown]
  - Erythema [Recovered/Resolved]
  - Feeling hot [Recovered/Resolved]
  - Flushing [Recovered/Resolved]
  - Pallor [Recovered/Resolved]

NARRATIVE: CASE EVENT DATE: 20150611
